FAERS Safety Report 21129649 (Version 1)
Quarter: 2022Q3

REPORT INFORMATION
  Report Type: Other
  Country: None (occurrence: US)
  Receive Date: 20220726
  Receipt Date: 20220726
  Transmission Date: 20221027
  Serious: Yes (Hospitalization, Other)
  Sender: FDA-Public Use
  Company Number: US-OrBion Pharmaceuticals Private Limited-2131229

PATIENT
  Age: 36 Year
  Sex: Male

DRUGS (6)
  1. ARIPIPRAZOLE [Suspect]
     Active Substance: ARIPIPRAZOLE
     Indication: Schizoaffective disorder bipolar type
     Route: 065
  2. ISONIAZID [Interacting]
     Active Substance: ISONIAZID
     Route: 065
  3. CLOZAPINE [Concomitant]
     Active Substance: CLOZAPINE
     Route: 065
  4. VALPROIC ACID [Concomitant]
     Active Substance: VALPROIC ACID
     Route: 065
  5. LORAZEPAM [Concomitant]
     Active Substance: LORAZEPAM
     Route: 065
  6. PYRIDOXINE HCI [Concomitant]
     Active Substance: PYRIDOXINE HYDROCHLORIDE
     Route: 065

REACTIONS (6)
  - Drug interaction [Recovered/Resolved]
  - Agitation [Recovered/Resolved]
  - Psychotic disorder [Recovered/Resolved]
  - Tachycardia [Recovered/Resolved]
  - Decreased appetite [Recovered/Resolved]
  - Anxiety [Recovered/Resolved]
